FAERS Safety Report 8384790-1 (Version None)
Quarter: 2012Q2

REPORT INFORMATION
  Report Type: 
  Country: None (occurrence: None)
  Receive Date: 20120524
  Receipt Date: 20120518
  Transmission Date: 20120825
  Serious: Yes (Other)
  Sender: FDA-Public Use
  Company Number: GB-ROCHE-1070590

PATIENT
  Sex: Male
  Weight: 75 kg

DRUGS (2)
  1. MABTHERA [Suspect]
     Indication: RHEUMATOID ARTHRITIS
     Dates: start: 20090828
  2. PREDNISOLONE [Concomitant]

REACTIONS (3)
  - WOUND INFECTION [None]
  - OSTEOMYELITIS [None]
  - TOE AMPUTATION [None]
